FAERS Safety Report 6517536-X (Version None)
Quarter: 2009Q4

REPORT INFORMATION
  Report Type: 
  Country: None (occurrence: None)
  Receive Date: 20091224
  Receipt Date: 20091210
  Transmission Date: 20100525
  Serious: Yes (Other)
  Sender: FDA-Public Use
  Company Number: FR-PFIZER INC-2009308313

PATIENT
  Age: 43 Year
  Sex: Female

DRUGS (5)
  1. FELDENE [Suspect]
     Dosage: 20 MG, 1X/DAY
     Route: 048
     Dates: start: 20090907, end: 20090915
  2. PREDNISOLONE AND PREDNISOLONE STEAGLATE [Suspect]
     Dosage: 20 MG, 2X/DAY
     Route: 048
     Dates: start: 20090915, end: 20090922
  3. LAMALINE [Suspect]
     Dosage: 2 DF, 3X/DAY
     Route: 048
     Dates: start: 20090907, end: 20090920
  4. PANOS [Suspect]
     Dosage: 50 MG
     Route: 048
     Dates: start: 20090907, end: 20090920
  5. DICLOFENAC SODIUM [Suspect]
     Dosage: UNK
     Route: 061
     Dates: start: 20090907, end: 20090920

REACTIONS (1)
  - URTICARIA [None]
